FAERS Safety Report 26040199 (Version 1)
Quarter: 2025Q4

REPORT INFORMATION
  Report Type: Spontaneous
  Country: US (occurrence: None)
  Receive Date: 20251113
  Receipt Date: 20251113
  Transmission Date: 20260117
  Serious: No
  Sender: ORION
  Company Number: US-Orion Corporation ORION PHARMA-ENTC2025-0104

PATIENT
  Sex: Male

DRUGS (1)
  1. CARBIDOPA\ENTACAPONE\LEVODOPA [Suspect]
     Active Substance: CARBIDOPA\ENTACAPONE\LEVODOPA
     Indication: Product used for unknown indication
     Dosage: STRENGTH: 50 MG

REACTIONS (3)
  - Dysarthria [Unknown]
  - Feeling abnormal [Unknown]
  - Mental impairment [Unknown]
